FAERS Safety Report 16689540 (Version 2)
Quarter: 2020Q1

REPORT INFORMATION
  Report Type: Spontaneous
  Country: US (occurrence: US)
  Receive Date: 20190809
  Receipt Date: 20200227
  Transmission Date: 20200409
  Serious: No
  Sender: FDA-Public Use
  Company Number: US-SA-2019SA213283

PATIENT
  Age: 66 Year
  Sex: Female

DRUGS (13)
  1. BENADRYL [Concomitant]
     Active Substance: DIPHENHYDRAMINE HYDROCHLORIDE
  2. PRILOSEC [Concomitant]
     Active Substance: OMEPRAZOLE MAGNESIUM
  3. ZANTAC [Concomitant]
     Active Substance: RANITIDINE HYDROCHLORIDE
  4. DUPIXENT [Suspect]
     Active Substance: DUPILUMAB
     Indication: DERMATITIS ATOPIC
     Dosage: 300 MG, QOW
     Route: 058
     Dates: start: 20180914
  5. LEVOCETIRIZINE [Concomitant]
     Active Substance: LEVOCETIRIZINE
  6. PEPTO-BISMOL [Concomitant]
     Active Substance: BISMUTH SUBSALICYLATE
  7. MILK OF MAGNESIA [Concomitant]
     Active Substance: MAGNESIUM HYDROXIDE
  8. TYLENOL [Concomitant]
     Active Substance: ACETAMINOPHEN
  9. CALTRATE [Concomitant]
     Active Substance: CALCIUM CARBONATE
  10. MELOXICAM. [Concomitant]
     Active Substance: MELOXICAM
  11. CALTRATE WITH VITAMIN D [Concomitant]
     Active Substance: CALCIUM CARBONATE\CHOLECALCIFEROL
  12. MONTELUKAST [Concomitant]
     Active Substance: MONTELUKAST SODIUM
  13. RHINOCORT [Concomitant]
     Active Substance: BUDESONIDE

REACTIONS (4)
  - Stress [Not Recovered/Not Resolved]
  - Dermatitis atopic [Not Recovered/Not Resolved]
  - Product dose omission [Unknown]
  - Injection site pain [Not Recovered/Not Resolved]
